FAERS Safety Report 7522242-9 (Version None)
Quarter: 2011Q2

REPORT INFORMATION
  Report Type: 
  Country: None (occurrence: None)
  Receive Date: 20110603
  Receipt Date: 20110524
  Transmission Date: 20111010
  Serious: Yes (Hospitalization)
  Sender: FDA-Public Use
  Company Number: DE-AMGEN-DEUCT2011021584

PATIENT
  Age: 62 Year
  Sex: Male
  Weight: 94.2 kg

DRUGS (25)
  1. OXALIPLATIN [Concomitant]
     Indication: COLORECTAL CANCER
     Dosage: 135.8 MG, UNK
     Dates: start: 20110107, end: 20110401
  2. KALINOR-RETARD P [Concomitant]
     Dosage: UNK UNK, UNK
     Route: 048
     Dates: start: 20110204
  3. NORMOC [Concomitant]
     Indication: INSOMNIA
     Dosage: UNK
     Route: 048
     Dates: start: 20110204
  4. ONDANSETRON [Concomitant]
     Indication: NAUSEA
     Dosage: 8 MG, UNK
     Route: 042
     Dates: start: 20110304
  5. NOVALGIN [Concomitant]
     Indication: PAIN
     Dosage: 30 GTT, UNK
     Route: 048
     Dates: start: 20110110
  6. DOXY 100 [Concomitant]
     Indication: RASH
     Dosage: 100 MG, UNK
     Route: 048
     Dates: start: 20110107
  7. FRAGMIN [Concomitant]
     Indication: THROMBOSIS
     Dosage: UNK UNK, UNK
     Route: 058
     Dates: start: 20110204
  8. PANTHENOL [Concomitant]
     Indication: RASH
  9. LEUCOVORIN CALCIUM [Concomitant]
     Indication: COLORECTAL CANCER
     Dosage: 135.8 MG, UNK
     Dates: start: 20110107, end: 20110401
  10. LAXOBERAL [Concomitant]
     Indication: CONSTIPATION
     Dosage: 15 GTT, UNK
     Route: 048
     Dates: start: 20110204
  11. CALCIUM CARBONATE [Concomitant]
     Route: 048
     Dates: start: 20110210
  12. MAGNESIUM SULFATE [Concomitant]
     Indication: NEUROPATHY PERIPHERAL
     Dosage: 4 ML, UNK
     Route: 042
     Dates: start: 20110304
  13. FLUOROURACIL [Concomitant]
     Indication: COLORECTAL CANCER
     Dosage: 135.8 MG, UNK
     Dates: start: 20110107, end: 20110401
  14. NOCTAMID [Concomitant]
     Indication: INSOMNIA
     Dosage: UNK UNK, UNK
     Route: 048
     Dates: start: 20110122
  15. PANTOPRAZOLE [Concomitant]
     Dosage: 40 MG, UNK
     Route: 048
     Dates: start: 20110107
  16. MOVIPREP [Concomitant]
     Indication: CONSTIPATION
     Dosage: UNK UNK, UNK
     Route: 048
     Dates: start: 20110122
  17. PANITUMUMAB [Suspect]
     Indication: COLORECTAL CANCER METASTATIC
     Dosage: 522 MG, UNK
     Dates: start: 20110107
  18. MCP [Concomitant]
     Indication: NAUSEA
     Dosage: 20 GTT, UNK
     Route: 048
     Dates: start: 20110110
  19. HYDROCORTISONE [Concomitant]
     Indication: ACNE
  20. IRENAT [Concomitant]
     Dosage: 10 GTT, UNK
     Route: 048
     Dates: start: 20110304
  21. DOXY 100 [Concomitant]
     Indication: ACNE
  22. HYDROCORTISONE [Concomitant]
     Indication: RASH
     Dosage: UNK UNK, UNK
     Dates: start: 20110205
  23. PANTHENOL [Concomitant]
     Indication: ACNE
     Dosage: UNK UNK, UNK
     Route: 061
     Dates: start: 20110111
  24. DEXAMETHASONE [Concomitant]
     Indication: RASH
     Dosage: 8 MG, UNK
     Route: 042
     Dates: start: 20110304
  25. LACTULOSE [Concomitant]
     Indication: CONSTIPATION
     Dosage: 10 MG, UNK
     Route: 048
     Dates: start: 20110112

REACTIONS (1)
  - PNEUMONIA [None]
